FAERS Safety Report 25807377 (Version 1)
Quarter: 2025Q3

REPORT INFORMATION
  Report Type: Spontaneous
  Country: US (occurrence: US)
  Receive Date: 20250916
  Receipt Date: 20250916
  Transmission Date: 20251020
  Serious: Yes (Hospitalization, Other)
  Sender: GRIFOLS
  Company Number: US-IGSA-BIG0037885

PATIENT
  Age: 70 Year
  Sex: Female

DRUGS (8)
  1. GAMUNEX-C [Suspect]
     Active Substance: HUMAN IMMUNOGLOBULIN G
     Indication: Chronic inflammatory demyelinating polyradiculoneuropathy
     Route: 042
  2. LEVOTHYROXINE [Concomitant]
     Active Substance: LEVOTHYROXINE
     Route: 048
  3. LIOTHYRONINE [Concomitant]
     Active Substance: LIOTHYRONINE
     Route: 048
  4. MELOXICAM [Concomitant]
     Active Substance: MELOXICAM
     Route: 048
  5. NYSTATIN [Concomitant]
     Active Substance: NYSTATIN
  6. OMEPRAZOLE [Concomitant]
     Active Substance: OMEPRAZOLE
     Route: 048
  7. PREGABALIN [Concomitant]
     Active Substance: PREGABALIN
  8. ROSUVASTATIN [Concomitant]
     Active Substance: ROSUVASTATIN
     Route: 048

REACTIONS (1)
  - Pneumonia [Not Recovered/Not Resolved]

NARRATIVE: CASE EVENT DATE: 20250906
